FAERS Safety Report 4455856-3 (Version None)
Quarter: 2004Q3

REPORT INFORMATION
  Report Type: 
  Country: None (occurrence: None)
  Receive Date: 20040922
  Receipt Date: 20040906
  Transmission Date: 20050211
  Serious: Yes (Hospitalization)
  Sender: FDA-Public Use
  Company Number: BE-ROCHE-380294

PATIENT
  Age: 53 Year
  Sex: Female
  Weight: 98 kg

DRUGS (2)
  1. PEGASYS [Suspect]
     Indication: DRUG USE FOR UNKNOWN INDICATION
     Dosage: DOSING REGIMEN REPORTED AS 180
     Route: 058
     Dates: start: 20040726, end: 20040827
  2. COPEGUS [Suspect]
     Indication: DRUG USE FOR UNKNOWN INDICATION
     Dosage: DOSING REGIMEN REPORTED AS 1200 MG
     Route: 048
     Dates: start: 20040716, end: 20040827

REACTIONS (3)
  - ANAEMIA [None]
  - KIDNEY INFECTION [None]
  - RENAL FAILURE [None]
